FAERS Safety Report 25220836 (Version 3)
Quarter: 2025Q4

REPORT INFORMATION
  Report Type: Report from Study
  Country: CN (occurrence: CN)
  Receive Date: 20250421
  Receipt Date: 20251230
  Transmission Date: 20260117
  Serious: Yes (Hospitalization, Other)
  Sender: Vantive US Healthcare
  Company Number: CN-VANTIVE-2025VAN001839

PATIENT
  Age: 52 Year
  Sex: Male
  Weight: 68 kg

DRUGS (7)
  1. EXTRANEAL [Suspect]
     Active Substance: CALCIUM CHLORIDE\ICODEXTRIN\MAGNESIUM CHLORIDE\SODIUM CHLORIDE\SODIUM LACTATE
     Indication: Azotaemia
     Dosage: 2 LITERS, 1 BAG PER DAY
     Dates: start: 20240829, end: 20250729
  2. DIANEAL [Suspect]
     Active Substance: CALCIUM CHLORIDE\DEXTROSE\MAGNESIUM CHLORIDE\SODIUM CHLORIDE\SODIUM LACTATE
     Indication: Azotaemia
     Dosage: EVERY 4 HOURS (Q4H), 2 TIMES (DOSE REDUCED)
  3. DIANEAL [Suspect]
     Active Substance: CALCIUM CHLORIDE\DEXTROSE\MAGNESIUM CHLORIDE\SODIUM CHLORIDE\SODIUM LACTATE
     Dosage: 2 LITERS, 4 BAGS PER DAY (3 BAGS EVERY 4 HOURS (Q4H) AND 1 BAG EVERY 8 HOURS (Q8H))
  4. HYDROCHLOROTHIAZIDE\IRBESARTAN [Concomitant]
     Active Substance: HYDROCHLOROTHIAZIDE\IRBESARTAN
     Indication: Essential hypertension
     Dosage: 1 TABLET ONCE DAILY (QD)
  5. FUROSEMIDE [Concomitant]
     Active Substance: FUROSEMIDE
     Indication: Nephrogenic anaemia
     Dosage: 20 MG ONCE A DAY (QD)
  6. METHOXY POLYETHYLENE GLYCOL-EPOETIN BETA [Concomitant]
     Active Substance: METHOXY POLYETHYLENE GLYCOL-EPOETIN BETA
     Indication: Nephrogenic anaemia
     Dosage: 100 ?G ST
  7. FOLIC ACID [Concomitant]
     Active Substance: FOLIC ACID
     Indication: Nephrogenic anaemia
     Dosage: 5 MG ONCE A DAY (QD)

REACTIONS (7)
  - Inadequate peritoneal dialysis [Recovered/Resolved]
  - Blood potassium decreased [Unknown]
  - Electrolyte imbalance [Unknown]
  - Blood creatinine increased [Not Recovered/Not Resolved]
  - Discomfort [Unknown]
  - Weight increased [Not Recovered/Not Resolved]
  - Dizziness [Unknown]

NARRATIVE: CASE EVENT DATE: 20241226
